FAERS Safety Report 6708113-6 (Version None)
Quarter: 2010Q2

REPORT INFORMATION
  Report Type: 
  Country: None (occurrence: None)
  Receive Date: 20100503
  Receipt Date: 20090430
  Transmission Date: 20101027
  Serious: Yes (Other)
  Sender: FDA-Public Use
  Company Number: US-ASTRAZENECA-2008UW11570

PATIENT
  Age: 53 Year
  Sex: Female
  Weight: 49.9 kg

DRUGS (7)
  1. NEXIUM [Suspect]
     Indication: DUODENAL ULCER
     Dosage: 40 MG TWO TO THREE TIMES A WEEK
     Route: 048
     Dates: start: 20070101
  2. NEXIUM [Suspect]
     Route: 048
  3. RESTORIL [Concomitant]
     Indication: SLEEP DISORDER
  4. FIORICET [Concomitant]
  5. FOSAMAX [Concomitant]
     Indication: OSTEOARTHRITIS
     Dosage: MONTHLY
  6. LISINOPRIL [Concomitant]
     Indication: BLOOD PRESSURE
     Route: 048
  7. ZESTRIL [Concomitant]
     Indication: BLOOD PRESSURE

REACTIONS (2)
  - ABDOMINAL PAIN UPPER [None]
  - NEUTROPENIA [None]
